FAERS Safety Report 24844728 (Version 5)
Quarter: 2025Q4

REPORT INFORMATION
  Report Type: Report from Study
  Country: US (occurrence: US)
  Receive Date: 20250115
  Receipt Date: 20251003
  Transmission Date: 20260117
  Serious: Yes (Hospitalization)
  Sender: SUNOVION
  Company Number: US-SUMITOMO PHARMA SWITZERLAND GMBH-2024SPA006917

PATIENT
  Age: 87 Year
  Sex: Male

DRUGS (2)
  1. ORGOVYX [Suspect]
     Active Substance: RELUGOLIX
     Indication: Prostate cancer
     Dosage: 120 MG, QD (STARTED WITH BIOLOGICS)
     Route: 048
     Dates: start: 20250104
  2. XTANDI [Concomitant]
     Active Substance: ENZALUTAMIDE
     Indication: Prostate cancer
     Dosage: 160 MG, QD
     Dates: start: 20241224

REACTIONS (7)
  - Dizziness [Unknown]
  - Hypertension [Unknown]
  - Tremor [Unknown]
  - Balance disorder [Unknown]
  - Urinary tract infection [Unknown]
  - Fatigue [Unknown]
  - Incorrect dose administered [Recovered/Resolved]
